FAERS Safety Report 18922082 (Version 1)
Quarter: 2021Q1

REPORT INFORMATION
  Report Type: Spontaneous
  Country: US (occurrence: US)
  Receive Date: 20210220
  Receipt Date: 20210220
  Transmission Date: 20210420
  Serious: No
  Sender: FDA-Public Use
  Company Number: None

PATIENT
  Age: 6 Month
  Sex: Male

DRUGS (1)
  1. EUCRISA [Suspect]
     Active Substance: CRISABOROLE
     Indication: ECZEMA
     Route: 061
     Dates: start: 20210219, end: 20210220

REACTIONS (2)
  - Feeling abnormal [None]
  - Hypersensitivity [None]

NARRATIVE: CASE EVENT DATE: 20210220
